FAERS Safety Report 15608629 (Version 2)
Quarter: 2019Q1

REPORT INFORMATION
  Report Type: Spontaneous
  Country: LB (occurrence: LB)
  Receive Date: 20181112
  Receipt Date: 20190128
  Transmission Date: 20190417
  Serious: Yes (Death, Other)
  Sender: FDA-Public Use
  Company Number: LB-SA-2018SA308652

PATIENT
  Age: 93 Year
  Sex: Female

DRUGS (1)
  1. APROVEL [Suspect]
     Active Substance: IRBESARTAN
     Indication: HYPERTENSION
     Dosage: 150 MG, QD
     Route: 048

REACTIONS (6)
  - Coma [Unknown]
  - Skin cancer [Fatal]
  - Adenosquamous carcinoma of the cervix [Unknown]
  - Squamous cell carcinoma [Unknown]
  - Skin lesion [Unknown]
  - Death [Fatal]

NARRATIVE: CASE EVENT DATE: 2017
